FAERS Safety Report 17116221 (Version 2)
Quarter: 2019Q4

REPORT INFORMATION
  Report Type: Spontaneous
  Country: US (occurrence: US)
  Receive Date: 20191205
  Receipt Date: 20191210
  Transmission Date: 20200122
  Serious: Yes (Life-Threatening, Hospitalization, Other)
  Sender: FDA-Public Use
  Company Number: US-SA-2019SA332785

PATIENT
  Age: 67 Year
  Sex: Male

DRUGS (3)
  1. ESOMEPRAZOLE. [Concomitant]
     Active Substance: ESOMEPRAZOLE MAGNESIUM
     Dosage: UNK UNK, PRN
  2. LEVOCETIRIZINE [Suspect]
     Active Substance: LEVOCETIRIZINE
     Indication: RHINITIS ALLERGIC
     Dosage: 5 MG DAILY FOR 11 CONSECUTIVE DAYS
     Route: 065
  3. ACETAMINOPHEN. [Concomitant]
     Active Substance: ACETAMINOPHEN
     Dosage: UNK UNK, PRN

REACTIONS (11)
  - Idiosyncratic drug reaction [Recovering/Resolving]
  - Hepatic encephalopathy [Recovering/Resolving]
  - Periportal oedema [Recovering/Resolving]
  - Condition aggravated [Recovering/Resolving]
  - Jaundice [Recovering/Resolving]
  - Abnormal faeces [Recovering/Resolving]
  - Hepatomegaly [Recovering/Resolving]
  - Hepatic enzyme increased [Recovering/Resolving]
  - Drug-induced liver injury [Recovering/Resolving]
  - Chromaturia [Recovering/Resolving]
  - Ocular icterus [Recovering/Resolving]
